FAERS Safety Report 22332381 (Version 1)
Quarter: 2023Q2

REPORT INFORMATION
  Report Type: Spontaneous
  Country: None (occurrence: US)
  Receive Date: 20230517
  Receipt Date: 20230517
  Transmission Date: 20230721
  Serious: No
  Sender: FDA-Public Use
  Company Number: US-Westminster Pharmaceuticals, LLC-2141581

PATIENT
  Sex: Male

DRUGS (2)
  1. HYDROQUINONE [Suspect]
     Active Substance: HYDROQUINONE
     Route: 004
  2. HYDROQUINONE [Suspect]
     Active Substance: HYDROQUINONE
     Route: 004

REACTIONS (1)
  - Product selection error [Recovered/Resolved]

NARRATIVE: CASE EVENT DATE: 20230512
